FAERS Safety Report 9058576 (Version 1)
Quarter: 2013Q1

REPORT INFORMATION
  Report Type: Spontaneous
  Country: ZA (occurrence: ZA)
  Receive Date: 20130211
  Receipt Date: 20130211
  Transmission Date: 20140127
  Serious: Yes (Life-Threatening, Hospitalization)
  Sender: FDA-Public Use
  Company Number: ZA-JNJFOC-20130117420

PATIENT
  Age: 20 Year
  Sex: Female

DRUGS (3)
  1. PARACETAMOL [Suspect]
     Route: 065
  2. PARACETAMOL [Suspect]
     Indication: PRODUCT USED FOR UNKNOWN INDICATION
     Route: 065
  3. AMITRIPTYLINE [Suspect]
     Indication: PRODUCT USED FOR UNKNOWN INDICATION
     Route: 065

REACTIONS (10)
  - Intentional overdose [Unknown]
  - Electrocardiogram QRS complex prolonged [Recovering/Resolving]
  - Electrocardiogram QT prolonged [Recovering/Resolving]
  - Status epilepticus [Recovered/Resolved]
  - Haemodynamic instability [Recovered/Resolved]
  - Bundle branch block right [Unknown]
  - Heart rate increased [Recovered/Resolved]
  - Respiratory arrest [Recovered/Resolved]
  - Somnolence [Recovered/Resolved]
  - Electrocardiogram abnormal [Recovered/Resolved]
